FAERS Safety Report 6620963-3 (Version None)
Quarter: 2010Q1

REPORT INFORMATION
  Report Type: 
  Country: None (occurrence: None)
  Receive Date: 20100308
  Receipt Date: 20100308
  Transmission Date: 20100710
  Serious: Yes (Death, Hospitalization)
  Sender: FDA-Public Use
  Company Number: None

PATIENT
  Age: 85 Year
  Sex: Male
  Weight: 64.6 kg

DRUGS (3)
  1. DIGOXIN [Suspect]
     Indication: ATRIAL FIBRILLATION
     Dosage: .125 MG EVERY DAY PO
     Route: 048
     Dates: start: 20061220, end: 20100217
  2. DIGOXIN [Suspect]
     Indication: CARDIAC FAILURE CONGESTIVE
     Dosage: .125 MG EVERY DAY PO
     Route: 048
     Dates: start: 20061220, end: 20100217
  3. FUROSEMIDE [Suspect]
     Dosage: 40 MG EVERY DAY PO
     Route: 048
     Dates: start: 19930128

REACTIONS (3)
  - HYPONATRAEMIA [None]
  - HYPOVOLAEMIA [None]
  - THERAPEUTIC AGENT TOXICITY [None]
